FAERS Safety Report 7879115-1 (Version None)
Quarter: 2011Q4

REPORT INFORMATION
  Report Type: 
  Country: None (occurrence: None)
  Receive Date: 20111101
  Receipt Date: 20111027
  Transmission Date: 20120403
  Serious: Yes (Death, Other)
  Sender: FDA-Public Use
  Company Number: PHHY2011DO95302

PATIENT
  Age: 90 Year
  Sex: Female

DRUGS (1)
  1. ZOLEDRONOC ACID [Suspect]
     Dosage: UNK
     Route: 042

REACTIONS (5)
  - FEMUR FRACTURE [None]
  - RENAL DISORDER [None]
  - HAEMODIALYSIS [None]
  - DEATH [None]
  - URINARY RETENTION [None]
